FAERS Safety Report 7390417-8 (Version None)
Quarter: 2011Q2

REPORT INFORMATION
  Report Type: 
  Country: None (occurrence: None)
  Receive Date: 20110401
  Receipt Date: 20110322
  Transmission Date: 20111010
  Serious: Yes (Other)
  Sender: FDA-Public Use
  Company Number: TH-ELI_LILLY_AND_COMPANY-TH201103006233

PATIENT
  Age: 81 Year
  Sex: Female

DRUGS (11)
  1. BESTATIN [Concomitant]
     Dosage: 10 MG, QD
  2. VANCOMYCIN [Concomitant]
     Dosage: 1 G, DAILY FOR 14 DAYS
  3. VITAMIN D [Concomitant]
     Dosage: 20000 IU, 2/W
  4. FORTEO [Suspect]
     Indication: OSTEOPOROSIS
     Dosage: 20 UG, QD
     Route: 058
     Dates: start: 20110131, end: 20110318
  5. SENOKOT [Concomitant]
     Dosage: UNK, BID
  6. XANAX [Concomitant]
     Dosage: 0.5 MG, PRN
  7. SODIUM CHLORIDE [Concomitant]
  8. MADIPLOT [Concomitant]
     Dosage: 20 MG, QD
  9. ANAPRIL [Concomitant]
     Dosage: 20 MG, UNK
  10. BEVANTOLOL [Concomitant]
     Dosage: 600 MG, QD
  11. ATENOLOL [Concomitant]
     Dosage: 50 MG, QD

REACTIONS (1)
  - PLATELET COUNT DECREASED [None]
